FAERS Safety Report 17807081 (Version 1)
Quarter: 2020Q2

REPORT INFORMATION
  Report Type: Spontaneous
  Country: US (occurrence: US)
  Receive Date: 20200520
  Receipt Date: 20200520
  Transmission Date: 20200714
  Serious: No
  Sender: FDA-Public Use
  Company Number: US-VERTEX PHARMACEUTICALS-2020-011087

PATIENT
  Sex: Female
  Weight: 54 kg

DRUGS (6)
  1. LEVOTHYROXINE SODIUM. [Concomitant]
     Active Substance: LEVOTHYROXINE SODIUM
  2. LIOTHYRONINE SODIUM. [Concomitant]
     Active Substance: LIOTHYRONINE SODIUM
  3. ESTRADIOL. [Concomitant]
     Active Substance: ESTRADIOL
  4. SYMDEKO [Suspect]
     Active Substance: IVACAFTOR\TEZACAFTOR
     Indication: CYSTIC FIBROSIS
     Dosage: 100MG TEZACAFTOR/150MG IVACAFTOR, 150MG IVACAFTOR, BID
     Route: 048
     Dates: end: 2020
  5. PROGESTERON [Concomitant]
     Active Substance: PROGESTERONE
  6. CENTRUM KIDS [Concomitant]
     Route: 048

REACTIONS (1)
  - Malaise [Unknown]
